FAERS Safety Report 5844588-2 (Version None)
Quarter: 2008Q3

REPORT INFORMATION
  Report Type: 
  Country: None (occurrence: None)
  Receive Date: 20080813
  Receipt Date: 20080813
  Transmission Date: 20090109
  Serious: Yes (Hospitalization)
  Sender: FDA-Public Use
  Company Number: None

PATIENT
  Age: 9 Year
  Sex: Female
  Weight: 44.9061 kg

DRUGS (1)
  1. JELLYFISH SQUISH  4% LIDOCAINE HCL  COSTAL SOLUTIONS, INC. [Suspect]
     Indication: VENOMOUS STING
     Dosage: LIBERALLY TO AFFECTED AREA TOP
     Route: 061
     Dates: start: 20080804, end: 20080804

REACTIONS (5)
  - BLISTER [None]
  - BURNS SECOND DEGREE [None]
  - CHEMICAL BURN OF SKIN [None]
  - ERYTHEMA [None]
  - SYNCOPE [None]
